FAERS Safety Report 6849183-4 (Version None)
Quarter: 2010Q3

REPORT INFORMATION
  Report Type: 
  Country: None (occurrence: None)
  Receive Date: 20100716
  Receipt Date: 20100715
  Transmission Date: 20110219
  Serious: Yes (Death)
  Sender: FDA-Public Use
  Company Number: PHHO2010DE10697

PATIENT
  Sex: Female

DRUGS (3)
  1. BASILIXIMAB [Suspect]
     Indication: LIVER TRANSPLANT
     Dosage: UNK
  2. PROGRAF [Suspect]
     Indication: LIVER TRANSPLANT
     Dosage: 3.5 MG, BID
     Dates: start: 20090825
  3. NO TREATMENT RECEIVED NOMED [Suspect]

REACTIONS (2)
  - HEPATIC NEOPLASM MALIGNANT RECURRENT [None]
  - METASTASIS [None]
